FAERS Safety Report 7547196-0 (Version None)
Quarter: 2011Q2

REPORT INFORMATION
  Report Type: 
  Country: None (occurrence: None)
  Receive Date: 20110614
  Receipt Date: 20110531
  Transmission Date: 20111010
  Serious: Yes (Hospitalization, Other)
  Sender: FDA-Public Use
  Company Number: JP-UCBSA-033840

PATIENT
  Sex: Female

DRUGS (4)
  1. ROZEREM [Concomitant]
     Indication: INSOMNIA
     Route: 048
     Dates: start: 20100811
  2. XYZAL [Suspect]
     Indication: RHINITIS ALLERGIC
     Route: 048
     Dates: start: 20110314, end: 20110321
  3. MICAMLO [Concomitant]
     Indication: HYPERTENSION
     Route: 048
     Dates: start: 20110202
  4. LENDORMIN D [Concomitant]
     Indication: INSOMNIA
     Route: 048
     Dates: start: 20100811

REACTIONS (2)
  - PYELONEPHRITIS [None]
  - LIVER DISORDER [None]
